FAERS Safety Report 5119118-3 (Version None)
Quarter: 2006Q3

REPORT INFORMATION
  Report Type: 
  Country: None (occurrence: None)
  Receive Date: 20060926
  Receipt Date: 20060913
  Transmission Date: 20061208
  Serious: Yes (Other)
  Sender: FDA-Public Use
  Company Number: 30103

PATIENT
  Age: 8 Year
  Sex: Female
  Weight: 35 kg

DRUGS (1)
  1. ALDARA [Suspect]
     Indication: SKIN PAPILLOMA
     Dosage: TOPICAL     A FEW DAYS
     Route: 061
     Dates: start: 20060101, end: 20060101

REACTIONS (6)
  - BACTERIAL INFECTION [None]
  - INFLAMMATION [None]
  - LIP PAIN [None]
  - LYMPHADENOPATHY [None]
  - MOUTH ULCERATION [None]
  - ORAL MUCOSAL BLISTERING [None]
